FAERS Safety Report 14025951 (Version 1)
Quarter: 2017Q3

REPORT INFORMATION
  Report Type: Spontaneous
  Country: US (occurrence: US)
  Receive Date: 20170929
  Receipt Date: 20170929
  Transmission Date: 20171128
  Serious: No
  Sender: FDA-Public Use
  Company Number: US-LUNDBECK-DKLU2031770

PATIENT
  Age: 58 Year
  Sex: Female

DRUGS (1)
  1. NORTHERA [Suspect]
     Active Substance: DROXIDOPA
     Indication: PRODUCT USED FOR UNKNOWN INDICATION
     Dosage: SCHEDULE B STATUS UNKNOWN
     Route: 065
     Dates: start: 20170422

REACTIONS (1)
  - Myalgia [Unknown]

NARRATIVE: CASE EVENT DATE: 20170501
